FAERS Safety Report 7484779-0 (Version None)
Quarter: 2011Q2

REPORT INFORMATION
  Report Type: 
  Country: None (occurrence: None)
  Receive Date: 20110517
  Receipt Date: 20090930
  Transmission Date: 20111010
  Serious: Yes (Hospitalization, Other)
  Sender: FDA-Public Use
  Company Number: US-BAYER-2011-006280

PATIENT
  Age: 52 Year
  Sex: Male
  Weight: 71.202 kg

DRUGS (8)
  1. TRASYLOL [Suspect]
     Indication: CORONARY ARTERY BYPASS
     Dosage: UNK
     Dates: start: 20051024
  2. LASIX [Concomitant]
  3. NORVASC [Concomitant]
  4. SYNTHROID [Concomitant]
  5. ASPIRIN [Concomitant]
  6. ZAROXOLYN [Concomitant]
  7. TRASYLOL [Suspect]
     Indication: HEART VALVE OPERATION
  8. NORCO [Concomitant]

REACTIONS (12)
  - EMOTIONAL DISTRESS [None]
  - FEAR [None]
  - ANXIETY [None]
  - PAIN [None]
  - RENAL INJURY [None]
  - RENAL FAILURE [None]
  - MULTI-ORGAN FAILURE [None]
  - FEAR OF DEATH [None]
  - NERVOUSNESS [None]
  - DEPRESSION [None]
  - UNEVALUABLE EVENT [None]
  - INJURY [None]
